FAERS Safety Report 18269445 (Version 1)
Quarter: 2020Q3

REPORT INFORMATION
  Report Type: Spontaneous
  Country: US (occurrence: US)
  Receive Date: 20200915
  Receipt Date: 20200915
  Transmission Date: 20201103
  Serious: Yes (Death, Life-Threatening, Hospitalization, Other)
  Sender: FDA-Public Use
  Company Number: US-MYLANLABS-2020M1078410

PATIENT
  Age: 71 Year
  Sex: Male

DRUGS (3)
  1. FONDAPARINUX [Suspect]
     Active Substance: FONDAPARINUX
     Indication: ANTICOAGULANT THERAPY
     Dosage: UNK
     Route: 065
  2. WARFARIN [Suspect]
     Active Substance: WARFARIN
     Indication: ANTIPHOSPHOLIPID SYNDROME
     Dosage: UNK
     Route: 065
  3. HEPARIN SODIUM. [Suspect]
     Active Substance: HEPARIN SODIUM
     Indication: ANTICOAGULANT THERAPY
     Dosage: UNK
     Route: 041

REACTIONS (21)
  - Heparin-induced thrombocytopenia [Unknown]
  - Pain [Unknown]
  - Klebsiella bacteraemia [Unknown]
  - Skin necrosis [Unknown]
  - Necrotising fasciitis [Unknown]
  - Drug ineffective [Unknown]
  - Waldenstrom^s macroglobulinaemia [Unknown]
  - Autoimmune haemolytic anaemia [Unknown]
  - Thrombosis [Unknown]
  - Sepsis [Unknown]
  - Gastritis [Unknown]
  - Cardiolipin antibody positive [Unknown]
  - General physical health deterioration [Unknown]
  - Lymphoplasmacytoid lymphoma/immunocytoma [Unknown]
  - Death [Fatal]
  - Antiphospholipid syndrome [Unknown]
  - Haemorrhage [Unknown]
  - International normalised ratio abnormal [Unknown]
  - Blood immunoglobulin M increased [Unknown]
  - Blood lactate dehydrogenase increased [Unknown]
  - Condition aggravated [Unknown]
